FAERS Safety Report 9951391 (Version 2)
Quarter: 2015Q1

REPORT INFORMATION
  Report Type: Report from Study
  Country: PR (occurrence: PR)
  Receive Date: 20140304
  Receipt Date: 20150213
  Transmission Date: 20150721
  Serious: No
  Sender: FDA-Public Use
  Company Number: PR-ABBVIE-13P-131-1073559-00

PATIENT
  Age: 30 Year
  Sex: Male

DRUGS (1)
  1. HUMIRA [Suspect]
     Active Substance: ADALIMUMAB
     Indication: PRODUCT USED FOR UNKNOWN INDICATION
     Dates: start: 201211

REACTIONS (5)
  - Rash [Unknown]
  - Feeling hot [Unknown]
  - Rash generalised [Unknown]
  - Inflammation [Unknown]
  - Rash [Unknown]

NARRATIVE: CASE EVENT DATE: 201303
